FAERS Safety Report 7674533-9 (Version None)
Quarter: 2011Q3

REPORT INFORMATION
  Report Type: 
  Country: None (occurrence: None)
  Receive Date: 20110810
  Receipt Date: 20110729
  Transmission Date: 20111222
  Serious: Yes (Hospitalization, Other)
  Sender: FDA-Public Use
  Company Number: PHHY2011FR69144

PATIENT
  Sex: Female

DRUGS (12)
  1. GLEEVEC [Suspect]
     Dosage: 100 MG, TID
     Route: 048
     Dates: start: 20100601, end: 20110601
  2. ASPIRIN [Concomitant]
     Dosage: 75 MG, QD
  3. PLAVIX [Concomitant]
     Dosage: 75 MG, QD
  4. VALSARTAN  AND HYDROCHLOROTHIAZIDE [Concomitant]
     Dosage: 160 MG OF VALS AND 25 MG OF HYD, QD
     Dates: end: 20110601
  5. IKOREL [Concomitant]
     Dosage: 20 MG, BID
  6. OMEPRAZOLE [Concomitant]
     Dosage: 20 MG, QD
  7. RASILEZ (ALISKIREN) [Concomitant]
     Dosage: 150 MG, QD
     Dates: end: 20110601
  8. LERCANIDIPINE [Concomitant]
     Dosage: 20 MG, QD
  9. RILMENIDINE [Concomitant]
     Dosage: 1 MG, QD
     Dates: end: 20110601
  10. REPAGLINIDE [Concomitant]
     Dosage: 2 MG, BID
  11. CRESTOR [Concomitant]
     Dosage: 20 MG, QD
     Dates: end: 20110601
  12. ATENOLOL [Concomitant]
     Dosage: 100 MG, QD

REACTIONS (13)
  - GAIT DISTURBANCE [None]
  - NAUSEA [None]
  - CARDIAC FAILURE CONGESTIVE [None]
  - CARDIOTHORACIC RATIO INCREASED [None]
  - OEDEMA PERIPHERAL [None]
  - RALES [None]
  - VENOUS PRESSURE JUGULAR INCREASED [None]
  - HEPATIC PAIN [None]
  - GENERALISED OEDEMA [None]
  - SWELLING FACE [None]
  - MYOSITIS [None]
  - EYELID OEDEMA [None]
  - PAIN IN EXTREMITY [None]
